FAERS Safety Report 5280163-9 (Version None)
Quarter: 2007Q1

REPORT INFORMATION
  Report Type: 
  Country: None (occurrence: None)
  Receive Date: 20070326
  Receipt Date: 20070326
  Transmission Date: 20070707
  Serious: No
  Sender: FDA-Public Use
  Company Number: None

PATIENT
  Sex: Female
  Weight: 74.8435 kg

DRUGS (3)
  1. LEVAQUIN [Suspect]
     Indication: BRONCHITIS
     Dosage: 750 MILLIGRAMS  ONCE A DAY PO
     Route: 048
     Dates: start: 20070303, end: 20070310
  2. LEVAQUIN [Suspect]
     Indication: INFLAMMATION
     Dosage: 750 MILLIGRAMS  ONCE A DAY PO
     Route: 048
     Dates: start: 20070303, end: 20070310
  3. LEVAQUIN [Suspect]
     Indication: LUNG DISORDER
     Dosage: 750 MILLIGRAMS  ONCE A DAY PO
     Route: 048
     Dates: start: 20070303, end: 20070310

REACTIONS (4)
  - ARTHRALGIA [None]
  - AUTOIMMUNE DISORDER [None]
  - PAIN [None]
  - SWELLING [None]
